FAERS Safety Report 7956827-2 (Version None)
Quarter: 2011Q4

REPORT INFORMATION
  Report Type: 
  Country: None (occurrence: None)
  Receive Date: 20111130
  Receipt Date: 20111114
  Transmission Date: 20120403
  Serious: Yes (Hospitalization)
  Sender: FDA-Public Use
  Company Number: TCI2011A06079

PATIENT
  Age: 55 Year
  Sex: Male

DRUGS (5)
  1. BIGUANIDES [Concomitant]
  2. DRUG USED IN DIABETES [Concomitant]
  3. ACTOS [Suspect]
     Indication: TYPE 2 DIABETES MELLITUS
     Dosage: 30 MG (30 MG, 1 D) PER ORAL, 15 MG (15 MG, 1 D) PER ORAL
     Route: 048
     Dates: start: 20090511
  4. ALPHA GLUCOSIDASE INHIBITORS [Concomitant]
  5. SULFONAMIDES, UREA DERIVATIVES [Concomitant]

REACTIONS (1)
  - CEREBRAL INFARCTION [None]
